FAERS Safety Report 20509804 (Version 1)
Quarter: 2022Q1

REPORT INFORMATION
  Report Type: Report from Study
  Country: US (occurrence: US)
  Receive Date: 20220224
  Receipt Date: 20220224
  Transmission Date: 20220423
  Serious: Yes (Other)
  Sender: FDA-Public Use
  Company Number: US-TEVA-2018-US-851275

PATIENT
  Age: 80 Year
  Sex: Female

DRUGS (26)
  1. AUSTEDO [Suspect]
     Active Substance: DEUTETRABENAZINE
     Indication: Tardive dyskinesia
     Dosage: 36 MILLIGRAM DAILY;
     Route: 065
     Dates: start: 20171113, end: 20180131
  2. AUSTEDO [Suspect]
     Active Substance: DEUTETRABENAZINE
     Dosage: 48 MILLIGRAM DAILY;
     Route: 065
  3. ADVAIR DISKUS 250-50 MCG/DOSE inhaler [Concomitant]
     Dosage: 1 PUFF PO BID
  4. AGGRENOX 25-200 MG [Concomitant]
     Dosage: 1 CAP BY MOUTH TWO TIMES DAILY.
     Route: 048
  5. amoxicillin-clavulanate (AUGMENTIN) 875-125 MG [Concomitant]
  6. atorvastatin (LIPITOR) 20 MG [Concomitant]
     Dosage: 20 MILLIGRAM DAILY;
     Route: 048
  7. Budesonide-Formoterol Fumarate (SYMBICORT) 160-4.5 MCG/ACT AERO [Concomitant]
     Dosage: INHALE 2 PUFFS BY MOUTH TWO TIMES DAILY.
  8. CALCIUM CARBONATE\VITAMIN D [Concomitant]
     Active Substance: CALCIUM CARBONATE\VITAMIN D
     Dosage: (CALCIUM 600 + D OR)
     Route: 048
  9. carbidopa.;levodopa (SINEMET) 25-100 MG [Concomitant]
     Route: 048
  10. Cholecalciferol (VITAMIN D) [Concomitant]
     Dosage: 5000 IU (INTERNATIONAL UNIT) DAILY;
     Route: 048
  11. Cholestyramine light 4 G packet [Concomitant]
     Dosage: 1 PACKET BY MOUTH TWO TIMES DAILY
     Route: 048
  12. Cyanocobalamin (VITAMIN B-12) [Concomitant]
     Route: 060
  13. donepezil (ARICEPT) [Concomitant]
     Dosage: 5 MILLIGRAM DAILY;
     Route: 048
  14. SYNTHROID [Concomitant]
     Active Substance: LEVOTHYROXINE SODIUM
     Dosage: 75 MICROGRAM DAILY;
     Route: 048
  15. NAMENDA [Concomitant]
     Active Substance: MEMANTINE HYDROCHLORIDE
     Dosage: 20 MILLIGRAM DAILY;
     Route: 048
  16. Vitamind C + E- Copper [Concomitant]
     Dosage: 500 MILLIGRAM DAILY; MISE NATURAL PRODUCTS (ENERGY FOCUS OR
     Route: 048
  17. SINGULAIR [Concomitant]
     Active Substance: MONTELUKAST SODIUM
     Dosage: 10 MILLIGRAM DAILY; 1 TABLET PO HS
     Route: 048
  18. Nifedipine (Nifediac CC OR) [Concomitant]
     Route: 048
  19. OMEPRAZOLE OR [Concomitant]
     Route: 048
  20. PAXIL [Concomitant]
     Active Substance: PAROXETINE HYDROCHLORIDE
     Dosage: 30 MILLIGRAM DAILY;
     Route: 048
  21. polyethylene glycol (GLYCOLAX) [Concomitant]
     Dosage: 17-34G (ONE TO TWO CAPFULLS) IN A FULL GLASS OF LIQUID DAILY OR TWICE DAILY
  22. Potassium 99 MG [Concomitant]
     Dosage: TAKE BY MOUTH
     Route: 048
  23. PROAIR HFA 108 (90 BASE) MCG/ACT inhaler [Concomitant]
  24. Probiotic Product (Align) [Concomitant]
     Route: 048
  25. ropinirole (REQUIP) [Concomitant]
     Dosage: 8 MILLIGRAM DAILY;
     Route: 048
  26. trazodone (DESYREL) [Concomitant]
     Dosage: 25 MILLIGRAM DAILY; 50 MG TABLET, 0.5 TABS BY MOUTH NIGHTLY.

REACTIONS (4)
  - Dystonia [Recovered/Resolved with Sequelae]
  - Bruxism [Recovering/Resolving]
  - Nasopharyngitis [Unknown]
  - Dyskinesia [Recovered/Resolved with Sequelae]

NARRATIVE: CASE EVENT DATE: 20171122
